FAERS Safety Report 10112330 (Version 1)
Quarter: 2014Q2

REPORT INFORMATION
  Report Type: Spontaneous
  Country: US (occurrence: US)
  Receive Date: 20140425
  Receipt Date: 20140425
  Transmission Date: 20141212
  Serious: Yes (Other)
  Sender: FDA-Public Use
  Company Number: US-UCBSA-119030

PATIENT
  Age: 38 Year
  Sex: Female
  Weight: 86.18 kg

DRUGS (10)
  1. CIMZIA [Suspect]
     Dosage: STRENGTH: 400 MG
     Dates: start: 2008, end: 20140314
  2. IMURAN [Concomitant]
     Indication: CROHN^S DISEASE
     Dosage: STRENGTH: 50 MG, 3 TABLETS EVERY MORNING
     Dates: start: 1999
  3. CELEBREX [Concomitant]
     Indication: RHEUMATOID ARTHRITIS
  4. LEXAPRO [Concomitant]
     Indication: DEPRESSION
     Dosage: ONCE EVERY MORNING
  5. LEXAPRO [Concomitant]
     Indication: ANXIETY
     Dosage: ONCE EVERY MORNING
  6. IMETREX [Concomitant]
     Indication: MIGRAINE
  7. TOPAMAX [Concomitant]
     Indication: MIGRAINE
  8. AMBIEN CR [Concomitant]
     Indication: INSOMNIA
  9. LORTAB [Concomitant]
     Indication: PAIN
     Dosage: 10/325 NORCO PRN
  10. PHENERGAN [Concomitant]
     Indication: NAUSEA
     Dosage: PRN

REACTIONS (2)
  - Herpes zoster [Recovering/Resolving]
  - Fatigue [Recovered/Resolved]
